FAERS Safety Report 12476595 (Version 1)
Quarter: 2016Q2

REPORT INFORMATION
  Report Type: Spontaneous
  Country: JP (occurrence: JP)
  Receive Date: 20160617
  Receipt Date: 20160617
  Transmission Date: 20160815
  Serious: Yes (Death, Hospitalization)
  Sender: FDA-Public Use
  Company Number: JP-TEVA-668337ISR

PATIENT
  Age: 73 Year
  Sex: Male
  Weight: 61.2 kg

DRUGS (1)
  1. WARFARIN [Suspect]
     Active Substance: WARFARIN
     Indication: ANTICOAGULANT THERAPY
     Route: 065

REACTIONS (5)
  - Death [Fatal]
  - Back pain [Unknown]
  - Respiratory failure [Unknown]
  - Retroperitoneal haematoma [Not Recovered/Not Resolved]
  - Anaemia [Not Recovered/Not Resolved]
